FAERS Safety Report 24139704 (Version 1)
Quarter: 2024Q3

REPORT INFORMATION
  Report Type: Spontaneous
  Country: GB (occurrence: GB)
  Receive Date: 20240726
  Receipt Date: 20240726
  Transmission Date: 20241017
  Serious: Yes (Other)
  Sender: SANDOZ
  Company Number: GB-MHRA-TPP36959621C8887069YC1721732660399

PATIENT
  Age: 72 Year
  Sex: Female
  Weight: 96 kg

DRUGS (13)
  1. EZETIMIBE [Suspect]
     Active Substance: EZETIMIBE
     Indication: Blood cholesterol increased
     Route: 065
     Dates: start: 20240523
  2. CLOTRIMAZOLE [Concomitant]
     Active Substance: CLOTRIMAZOLE
     Indication: Antifungal treatment
     Dosage: APPLY TWO OR THREE TIMES A DAY (ANTI-FUNGAL)
     Route: 065
     Dates: start: 20240503, end: 20240510
  3. ENSTILAR [Concomitant]
     Active Substance: BETAMETHASONE DIPROPIONATE\CALCIPOTRIENE HYDRATE
     Indication: Product used for unknown indication
     Dosage: APPLY ONCE DAILY (CALCIPOTRIOL / BETAMETASONE S...
     Route: 065
     Dates: start: 20240718
  4. ESTRADIOL [Concomitant]
     Active Substance: ESTRADIOL
     Indication: Product used for unknown indication
     Dosage: INSERT ONE AT NIGHT FOR 2 WEEKS, THEN UP TO TWI
     Route: 065
     Dates: start: 20230421
  5. FLUCONAZOLE [Concomitant]
     Active Substance: FLUCONAZOLE
     Indication: Candida infection
     Dosage: SINGLE DOSE (ANTIFUNGAL ANTI-THRUSH)
     Route: 065
     Dates: start: 20240503, end: 20240504
  6. FLUCONAZOLE [Concomitant]
     Active Substance: FLUCONAZOLE
     Indication: Antifungal treatment
  7. LANSOPRAZOLE [Concomitant]
     Active Substance: LANSOPRAZOLE
     Indication: Product used for unknown indication
     Dosage: ONE CAPSULE DAILY
     Route: 065
     Dates: start: 20230421
  8. METFORMIN [Concomitant]
     Active Substance: METFORMIN HYDROCHLORIDE
     Indication: Product used for unknown indication
     Dosage: TAKE TWO TABLET TWICE DAILY WITH FOOD
     Route: 065
     Dates: start: 20230421
  9. NITROFURANTOIN [Concomitant]
     Active Substance: NITROFURANTOIN
     Indication: Product used for unknown indication
     Dosage: ONE CAPSULE TWICE A DAY WITH FOOD (ANTIBACTERIAL)
     Route: 065
     Dates: start: 20240716, end: 20240723
  10. PIOGLITAZONE [Concomitant]
     Active Substance: PIOGLITAZONE
     Indication: Product used for unknown indication
     Dosage: TAKE ONE DAILY
     Route: 065
     Dates: start: 20231221, end: 20240520
  11. RAMIPRIL [Concomitant]
     Active Substance: RAMIPRIL
     Indication: Hypertension
     Dosage: ONE CAPSULE DAILY (TO LOWER BLOOD PRESSURE)
     Route: 065
     Dates: start: 20230622
  12. ROSUVASTATIN [Concomitant]
     Active Substance: ROSUVASTATIN
     Indication: Blood cholesterol increased
     Dosage: TAKE ONE TABLET DAILY (TO LOWER CHOLESTEROL)
     Route: 065
     Dates: start: 20230622, end: 20240523
  13. RYBELSUS [Concomitant]
     Active Substance: SEMAGLUTIDE
     Indication: Product used for unknown indication
     Dosage: TAKE ONE DAILY
     Route: 065
     Dates: start: 20240520, end: 20240619

REACTIONS (1)
  - Steatorrhoea [Recovered/Resolved]
